FAERS Safety Report 12677784 (Version 1)
Quarter: 2016Q3

REPORT INFORMATION
  Report Type: Spontaneous
  Country: BR (occurrence: BR)
  Receive Date: 20160823
  Receipt Date: 20160823
  Transmission Date: 20161109
  Serious: Yes (Other)
  Sender: FDA-Public Use
  Company Number: BR-ALEXION PHARMACEUTICALS INC.-A201606103

PATIENT
  Age: 35 Year
  Sex: Male

DRUGS (1)
  1. SOLIRIS [Suspect]
     Active Substance: ECULIZUMAB
     Indication: HAEMOLYTIC URAEMIC SYNDROME
     Dosage: UNK
     Route: 042
     Dates: start: 201606

REACTIONS (3)
  - Cerebrovascular accident [Unknown]
  - Headache [Unknown]
  - Retinal vascular thrombosis [Unknown]

NARRATIVE: CASE EVENT DATE: 20160725
